FAERS Safety Report 13015723 (Version 1)
Quarter: 2016Q4

REPORT INFORMATION
  Report Type: Spontaneous
  Country: US (occurrence: US)
  Receive Date: 20161212
  Receipt Date: 20161212
  Transmission Date: 20170207
  Serious: No
  Sender: FDA-Public Use
  Company Number: PHHY2016US165465

PATIENT
  Age: 66 Year
  Sex: Female

DRUGS (1)
  1. ATOPICA (ANIMAL HEALTH) [Suspect]
     Active Substance: CYCLOSPORINE
     Indication: PRODUCT USED FOR UNKNOWN INDICATION
     Dosage: 10 MG, UNK
     Route: 048
     Dates: start: 20161129

REACTIONS (1)
  - Accidental exposure to product [Unknown]
